FAERS Safety Report 8721585 (Version 4)
Quarter: 2013Q2

REPORT INFORMATION
  Report Type: Spontaneous
  Country: US (occurrence: US)
  Receive Date: 20120814
  Receipt Date: 20130611
  Transmission Date: 20140414
  Serious: Yes (Death, Hospitalization, Other)
  Sender: FDA-Public Use
  Company Number: US-AMGEN-USASP2012050208

PATIENT
  Sex: Female

DRUGS (5)
  1. NEULASTA [Suspect]
     Indication: NEUTROPENIA
     Dosage: UNK
     Route: 065
  2. NEUPOGEN [Suspect]
     Indication: NEUTROPENIA
     Dosage: UNK
     Route: 065
  3. CISPLATIN [Concomitant]
     Indication: SMALL CELL LUNG CANCER
     Dosage: UNK
  4. ETOPOSIDE [Concomitant]
     Indication: SMALL CELL LUNG CANCER
     Dosage: UNK
  5. TOPOTECAN [Concomitant]
     Indication: SMALL CELL LUNG CANCER
     Dosage: UNK

REACTIONS (6)
  - Death [Fatal]
  - Hospitalisation [Unknown]
  - Neutropenia [Unknown]
  - Pancytopenia [Not Recovered/Not Resolved]
  - Pseudomonas infection [Unknown]
  - Therapeutic response decreased [Unknown]
